FAERS Safety Report 17061204 (Version 1)
Quarter: 2019Q4

REPORT INFORMATION
  Report Type: Spontaneous
  Country: US (occurrence: US)
  Receive Date: 20191121
  Receipt Date: 20191121
  Transmission Date: 20200122
  Serious: No
  Sender: FDA-Public Use
  Company Number: US-ARRAY-2019-06424

PATIENT

DRUGS (1)
  1. BRAFTOVI [Suspect]
     Active Substance: ENCORAFENIB
     Indication: SPINAL CORD NEOPLASM
     Dosage: UNK

REACTIONS (2)
  - Rash [Unknown]
  - Product use in unapproved indication [Unknown]
